FAERS Safety Report 17505074 (Version 1)
Quarter: 2020Q1

REPORT INFORMATION
  Report Type: Report from Study
  Country: US (occurrence: US)
  Receive Date: 20200305
  Receipt Date: 20200305
  Transmission Date: 20200409
  Serious: No
  Sender: FDA-Public Use
  Company Number: NVSC2020US062462

PATIENT
  Age: 35 Year
  Sex: Female

DRUGS (2)
  1. GLEEVEC [Suspect]
     Active Substance: IMATINIB MESYLATE
     Indication: CHRONIC MYELOID LEUKAEMIA
     Dosage: 400 MG, QD
     Route: 065
     Dates: start: 201606, end: 201912
  2. TASIGNA [Suspect]
     Active Substance: NILOTINIB
     Indication: CHRONIC MYELOID LEUKAEMIA
     Dosage: UNK, BID
     Route: 048
     Dates: start: 201912

REACTIONS (5)
  - Drug intolerance [Unknown]
  - Bone pain [Recovered/Resolved]
  - Nausea [Unknown]
  - Bone pain [Unknown]
  - Vomiting [Unknown]

NARRATIVE: CASE EVENT DATE: 201606
